FAERS Safety Report 9097623 (Version 2)
Quarter: 2013Q1

REPORT INFORMATION
  Report Type: Report from Study
  Country: CA (occurrence: CA)
  Receive Date: 20130212
  Receipt Date: 20130321
  Transmission Date: 20140127
  Serious: Yes (Hospitalization)
  Sender: FDA-Public Use
  Company Number: PHHY2013CA013251

PATIENT
  Sex: Female

DRUGS (4)
  1. CLOZARIL [Suspect]
     Dosage: UNK UKN, UNK
     Dates: start: 20090610, end: 2010
  2. CLOZARIL [Suspect]
     Dosage: UNK UKN, UNK
  3. SERTRALINE [Concomitant]
     Dosage: UNK UKN, UNK
  4. ARIPIPRAZOLE [Concomitant]
     Dosage: UNK UKN, UNK

REACTIONS (1)
  - Migraine [Recovering/Resolving]
